FAERS Safety Report 4707604-7 (Version None)
Quarter: 2005Q3

REPORT INFORMATION
  Report Type: 
  Country: None (occurrence: None)
  Receive Date: 20050705
  Receipt Date: 20050615
  Transmission Date: 20060218
  Serious: Yes (Other)
  Sender: FDA-Public Use
  Company Number: B0381159A

PATIENT
  Age: 4 Year
  Sex: Female

DRUGS (2)
  1. ALBENZA [Suspect]
     Dosage: 2 TABLET/SINGLE DOSE
     Dates: start: 20010314
  2. CHINESE MEDICATION [Concomitant]

REACTIONS (2)
  - CONVULSION [None]
  - HYPERPYREXIA [None]
